FAERS Safety Report 9639175 (Version 2)
Quarter: 2013Q4

REPORT INFORMATION
  Report Type: Spontaneous
  Country: US (occurrence: None)
  Receive Date: 20131021
  Receipt Date: 20131021
  Transmission Date: 20140711
  Serious: Yes (Death)
  Sender: FDA-Public Use
  Company Number: 2013AP008486

PATIENT
  Age: 26 Year
  Sex: Male

DRUGS (6)
  1. CITALOPRAM [Suspect]
     Route: 048
  2. ZOLPIDEM TARTRATE TABLETS [Suspect]
     Route: 048
  3. TRAZODONE HYDROCHLORIDE TABLETS USP [Suspect]
     Route: 048
  4. ALPRAZOLAM [Suspect]
     Route: 048
  5. PROMETHAZINE [Suspect]
     Route: 048
  6. ACETAMINOPHEN W/OXYCODONE [Suspect]
     Route: 048

REACTIONS (1)
  - Cardio-respiratory arrest [None]
